FAERS Safety Report 7443758-X (Version None)
Quarter: 2011Q2

REPORT INFORMATION
  Report Type: 
  Country: None (occurrence: None)
  Receive Date: 20110428
  Receipt Date: 20110325
  Transmission Date: 20111010
  Serious: No
  Sender: FDA-Public Use
  Company Number: US-BAUSCH-2011BL002257

PATIENT
  Age: 64 Year
  Sex: Male

DRUGS (3)
  1. ADVAIR DISKUS 100/50 [Concomitant]
     Indication: ASTHMA
  2. IPRATROPIUM BROMIDE [Suspect]
     Indication: OFF LABEL USE
     Route: 047
     Dates: start: 20110214, end: 20110308
  3. IPRATROPIUM BROMIDE [Suspect]
     Indication: UPPER-AIRWAY COUGH SYNDROME
     Route: 047
     Dates: start: 20110214, end: 20110308

REACTIONS (2)
  - NASAL DISCOMFORT [None]
  - EPISTAXIS [None]
